FAERS Safety Report 5326920-1 (Version None)
Quarter: 2007Q2

REPORT INFORMATION
  Report Type: 
  Country: None (occurrence: None)
  Receive Date: 20070511
  Receipt Date: 20070430
  Transmission Date: 20071010
  Serious: Yes (Hospitalization, Disabling, Other)
  Sender: FDA-Public Use
  Company Number: M-07-0326

PATIENT
  Age: 60 Year
  Sex: Male
  Weight: 90.7194 kg

DRUGS (8)
  1. PACERONE [Suspect]
     Indication: VENTRICULAR EXTRASYSTOLES
     Dosage: 200 MG, QD, PO
     Route: 048
     Dates: start: 20060701, end: 20070201
  2. AMIODARONE HCL [Suspect]
     Indication: VENTRICULAR EXTRASYSTOLES
     Dosage: 200 MG, BID, PO
     Route: 048
     Dates: start: 20060401, end: 20060701
  3. AMIODARONE HCL [Suspect]
     Indication: VENTRICULAR EXTRASYSTOLES
     Dosage: 200 MG, QD, PO
     Route: 048
     Dates: end: 20060401
  4. CORDARONE [Suspect]
     Indication: VENTRICULAR EXTRASYSTOLES
     Dosage: 200 MG, QD, PO
     Route: 048
     Dates: start: 19930101
  5. LIPITOR [Concomitant]
  6. ENALAPRIL MALEATE AND HYDROCHLOROTHIAZIDE [Concomitant]
  7. ASPIRIN [Concomitant]
  8. POTASSIUM ACETATE [Concomitant]

REACTIONS (8)
  - ANOREXIA [None]
  - HEART RATE DECREASED [None]
  - IMPAIRED WORK ABILITY [None]
  - INFLUENZA LIKE ILLNESS [None]
  - LIBIDO DECREASED [None]
  - PULMONARY FIBROSIS [None]
  - SLUGGISHNESS [None]
  - VENTRICULAR EXTRASYSTOLES [None]
